FAERS Safety Report 7164506-7 (Version None)
Quarter: 2010Q4

REPORT INFORMATION
  Report Type: 
  Country: None (occurrence: None)
  Receive Date: 20101123
  Receipt Date: 20100729
  Transmission Date: 20110411
  Serious: No
  Sender: FDA-Public Use
  Company Number: 016489

PATIENT

DRUGS (1)
  1. CIMZIA [Suspect]
     Indication: RHEUMATOID ARTHRITIS
     Dosage: (UNSPECIFIED  SUBCUTANEOUS)
     Route: 058

REACTIONS (2)
  - DRUG INTERACTION [None]
  - PARAESTHESIA [None]
